FAERS Safety Report 16549464 (Version 2)
Quarter: 2019Q3

REPORT INFORMATION
  Report Type: Spontaneous
  Country: US (occurrence: US)
  Receive Date: 20190710
  Receipt Date: 20190712
  Transmission Date: 20191004
  Serious: Yes (Other)
  Sender: FDA-Public Use
  Company Number: US-DRREDDYS-USA/USA/19/0111705

PATIENT
  Sex: Female

DRUGS (1)
  1. ESZOPICLONE. [Suspect]
     Active Substance: ESZOPICLONE
     Indication: SLEEP DISORDER
     Route: 048
     Dates: start: 20190629, end: 20190701

REACTIONS (9)
  - Insomnia [Recovered/Resolved]
  - Dysgeusia [Recovered/Resolved]
  - Product quality issue [Unknown]
  - Depression [Recovered/Resolved]
  - Drug ineffective [Unknown]
  - Hot flush [Recovered/Resolved]
  - Headache [Recovered/Resolved]
  - Adverse event [Unknown]
  - Feeling of despair [Recovered/Resolved]

NARRATIVE: CASE EVENT DATE: 20190701
